FAERS Safety Report 9219690 (Version 1)
Quarter: 2013Q2

REPORT INFORMATION
  Report Type: Spontaneous
  Country: US (occurrence: US)
  Receive Date: 20130409
  Receipt Date: 20130409
  Transmission Date: 20140414
  Serious: Yes (Death)
  Sender: FDA-Public Use
  Company Number: US-BAYER-2013-040453

PATIENT
  Age: 17 Year
  Sex: Female
  Weight: 116 kg

DRUGS (6)
  1. YAZ [Suspect]
     Indication: CONTRACEPTION
  2. YASMIN [Suspect]
  3. OCELLA [Suspect]
     Indication: CONTRACEPTION
  4. FERROUS SULFATE [Concomitant]
  5. MOTRIN [Concomitant]
  6. TYLENOL [Concomitant]

REACTIONS (3)
  - Pulmonary embolism [Fatal]
  - Pelvic venous thrombosis [Fatal]
  - Pulmonary infarction [Fatal]
